FAERS Safety Report 8630766 (Version 3)
Quarter: 2012Q4

REPORT INFORMATION
  Report Type: Report from Study
  Country: UG (occurrence: UG)
  Receive Date: 20120622
  Receipt Date: 20121218
  Transmission Date: 20130627
  Serious: Yes (Life-Threatening, Hospitalization)
  Sender: FDA-Public Use
  Company Number: UG-VIIV HEALTHCARE LIMITED-B0810002A

PATIENT
  Age: 0 Year
  Sex: Female
  Weight: 2.5 kg

DRUGS (3)
  1. COMBIVIR [Suspect]
     Indication: HIV INFECTION
     Dosage: 450MG Twice per day
     Route: 048
     Dates: start: 20120221
  2. NEVIRAPINE [Suspect]
     Indication: HIV INFECTION
     Dosage: 10MG Per day
     Route: 048
     Dates: start: 20120602
  3. LOPINAVIR + RITONAVIR [Suspect]
     Indication: HIV INFECTION
     Route: 048
     Dates: start: 20120221

REACTIONS (1)
  - Congenital anaemia [Recovered/Resolved]
